FAERS Safety Report 12350928 (Version 1)
Quarter: 2016Q2

REPORT INFORMATION
  Report Type: Spontaneous
  Country: US (occurrence: None)
  Receive Date: 20160509
  Receipt Date: 20160509
  Transmission Date: 20160815
  Serious: No
  Sender: FDA-Public Use
  Company Number: None

PATIENT
  Age: 77 Year
  Sex: Male
  Weight: 64.41 kg

DRUGS (9)
  1. B COMPLEX WITH FOLIC ACID + VIT C [Concomitant]
  2. LOW DOSE ASPIRIN [Concomitant]
     Active Substance: ASPIRIN
  3. VITAMIN D3 [Concomitant]
     Active Substance: CHOLECALCIFEROL
  4. CENTRUM SILVER [Concomitant]
     Active Substance: MINERALS\VITAMINS
  5. RAPAFLO [Suspect]
     Active Substance: SILODOSIN
     Indication: NOCTURIA
     Dosage: 8MG 1 PILL DAILY BED TIME MOUTH
     Route: 048
     Dates: start: 20160413, end: 20160422
  6. SELENIUM [Concomitant]
     Active Substance: SELENIUM
  7. BIOTIN [Concomitant]
     Active Substance: BIOTIN
  8. CITRACAL CALCIUM + D3 [Concomitant]
  9. RAPAFLO [Suspect]
     Active Substance: SILODOSIN
     Indication: BLADDER DISORDER
     Dosage: 8MG 1 PILL DAILY BED TIME MOUTH
     Route: 048
     Dates: start: 20160413, end: 20160422

REACTIONS (1)
  - Cardiac flutter [None]

NARRATIVE: CASE EVENT DATE: 20160422
